FAERS Safety Report 8390646-0 (Version None)
Quarter: 2012Q1

REPORT INFORMATION
  Report Type: 
  Country: None (occurrence: None)
  Receive Date: 20120323
  Receipt Date: 20110504
  Transmission Date: 20120608
  Serious: Yes (Other)
  Sender: FDA-Public Use
  Company Number: 163-21880-11031131

PATIENT
  Age: 49 Year
  Sex: Female
  Weight: 69.4003 kg

DRUGS (8)
  1. ACYCLOVIR [Concomitant]
  2. PROCHLORPERAZINE MALEATE [Concomitant]
  3. REVLIMID [Suspect]
     Indication: MULTIPLE MYELOMA
     Dosage: 10 MG, DAILY X 21 DAYS, PO, 10 MG, DAILY X 21 DAYS, PO
     Route: 048
     Dates: start: 20100601
  4. REVLIMID [Suspect]
     Indication: MULTIPLE MYELOMA
     Dosage: 10 MG, DAILY X 21 DAYS, PO, 10 MG, DAILY X 21 DAYS, PO
     Route: 048
     Dates: start: 20110203
  5. CIPROFLOXACIN [Concomitant]
  6. OMEPRAZOLE [Concomitant]
  7. METOPROLOL TARTRATE [Concomitant]
  8. MULTI-VITAMINS [Concomitant]

REACTIONS (2)
  - NASOPHARYNGITIS [None]
  - INFECTION [None]
